FAERS Safety Report 7658834-6 (Version None)
Quarter: 2011Q3

REPORT INFORMATION
  Report Type: 
  Country: None (occurrence: None)
  Receive Date: 20110805
  Receipt Date: 20110728
  Transmission Date: 20111222
  Serious: Yes (Hospitalization, Other)
  Sender: FDA-Public Use
  Company Number: JP-JNJFOC-20110800674

PATIENT
  Age: 73 Year
  Sex: Male

DRUGS (3)
  1. MORPHINE HCL ELIXIR [Suspect]
     Indication: PAIN
     Route: 058
  2. MORPHINE SULFATE [Suspect]
     Indication: PAIN
     Route: 048
  3. FENTANYL CITRATE [Suspect]
     Indication: CANCER PAIN
     Route: 062

REACTIONS (2)
  - DRUG INEFFECTIVE [None]
  - DELIRIUM [None]
